FAERS Safety Report 5596200-8 (Version None)
Quarter: 2007Q4

REPORT INFORMATION
  Report Type: 
  Country: None (occurrence: None)
  Receive Date: 20071218
  Receipt Date: 20070418
  Transmission Date: 20080405
  Serious: Yes (Hospitalization, Other)
  Sender: FDA-Public Use
  Company Number: 2006133798

PATIENT
  Sex: Female

DRUGS (2)
  1. BEXTRA [Suspect]
     Indication: ARTHRITIS
     Dosage: 20 MG (20 MG,1 IN 1 D)
     Dates: start: 20040831
  2. VIOXX [Suspect]
     Dates: start: 20000217, end: 20040901

REACTIONS (3)
  - ANXIETY [None]
  - INSOMNIA [None]
  - MYOCARDIAL INFARCTION [None]
